FAERS Safety Report 5826298-0 (Version None)
Quarter: 2008Q3

REPORT INFORMATION
  Report Type: 
  Country: None (occurrence: None)
  Receive Date: 20080729
  Receipt Date: 20080717
  Transmission Date: 20090109
  Serious: No
  Sender: FDA-Public Use
  Company Number: JP-PFIZER INC-2008059148

PATIENT
  Age: 76 Year
  Sex: Male

DRUGS (3)
  1. NORVASC [Suspect]
     Indication: HYPERTENSION
     Dosage: DAILY DOSE:5MG
     Route: 048
  2. TICLOPIDINE HCL [Suspect]
  3. EBRANTIL [Suspect]

REACTIONS (1)
  - SENSATION OF FOREIGN BODY [None]
